FAERS Safety Report 4975108-2 (Version None)
Quarter: 2006Q2

REPORT INFORMATION
  Report Type: 
  Country: None (occurrence: None)
  Receive Date: 20060414
  Receipt Date: 20060414
  Transmission Date: 20061013
  Serious: Yes (Other)
  Sender: FDA-Public Use
  Company Number: None

PATIENT
  Age: 71 Year
  Sex: Female
  Weight: 82.6 kg

DRUGS (16)
  1. TRAMADOL HCL [Suspect]
  2. ACETAMINOPHEN [Concomitant]
  3. CAPSAICIN [Concomitant]
  4. SIMVASTATIN [Concomitant]
  5. RISEDRONATE [Concomitant]
  6. NAPROXEN [Concomitant]
  7. GABAPENTIN [Concomitant]
  8. ASPIRIN [Concomitant]
  9. DOCUSATE NA [Concomitant]
  10. TRAMADOL HCL [Concomitant]
  11. FLUNISOLIDE [Concomitant]
  12. AMOXICILLIN  / CLAV [Concomitant]
  13. FUROSEMIDE [Concomitant]
  14. DILTIAZEM [Concomitant]
  15. LISINOPRIL [Concomitant]
  16. OMEPRAZOLE [Concomitant]

REACTIONS (2)
  - NAUSEA [None]
  - VOMITING [None]
